FAERS Safety Report 7130324-9 (Version None)
Quarter: 2010Q4

REPORT INFORMATION
  Report Type: 
  Country: None (occurrence: None)
  Receive Date: 20101116
  Receipt Date: 20101109
  Transmission Date: 20110411
  Serious: Yes (Other)
  Sender: FDA-Public Use
  Company Number: 2010SP029254

PATIENT
  Age: 37 Year
  Sex: Male
  Weight: 68 kg

DRUGS (7)
  1. ROCURONIUM BROMIDE [Suspect]
     Indication: NEUROMUSCULAR BLOCKING THERAPY
     Dosage: 60 MG; ONCE; IV, 10 MG; ONCE; IV
     Route: 042
     Dates: start: 20100521, end: 20100521
  2. PROPOFOL (OTHER MFR) [Concomitant]
  3. FENTANYL [Concomitant]
  4. LAUGHING GAS [Concomitant]
  5. SEVOFLURANE [Concomitant]
  6. NEO-SYNESIN (PHENYLEPHRINE HYDROCHLORIDE) [Concomitant]
  7. DOPAMINE HYDROCHLORIDE [Concomitant]

REACTIONS (4)
  - ANGIOPATHY [None]
  - BLOOD PRESSURE INCREASED [None]
  - EXTRASYSTOLES [None]
  - SUPRAVENTRICULAR TACHYCARDIA [None]
